FAERS Safety Report 20859417 (Version 3)
Quarter: 2023Q1

REPORT INFORMATION
  Report Type: Spontaneous
  Country: BE (occurrence: BE)
  Receive Date: 20220523
  Receipt Date: 20230201
  Transmission Date: 20230418
  Serious: Yes (Other)
  Sender: FDA-Public Use
  Company Number: BE-CELLTRION INC.-2022BE006870

PATIENT

DRUGS (13)
  1. RITUXIMAB [Suspect]
     Active Substance: RITUXIMAB
     Indication: Sydenham^s chorea
     Dosage: 375 MG/M2 1/WEEK, FOR 4 WEEKS/375 MG/M2, QW
     Route: 042
  2. ASPIRIN [Concomitant]
     Active Substance: ASPIRIN
     Indication: Symptomatic treatment
     Dosage: 2 MG/KG (HIGH DOSE)
     Route: 058
  3. ASPIRIN [Concomitant]
     Active Substance: ASPIRIN
     Indication: Thrombosis prophylaxis
     Dosage: 2 MG/KG (HIGH DOSE)
     Route: 058
  4. AMOXICILLIN [Concomitant]
     Active Substance: AMOXICILLIN
     Indication: Sydenham^s chorea
     Dosage: 75 MG/KG
  5. CARBAMAZEPINE [Concomitant]
     Active Substance: CARBAMAZEPINE
     Indication: Symptomatic treatment
     Dosage: 2.5 MG/KG (LOW-DOSE)
  6. HALOPERIDOL [Concomitant]
     Active Substance: HALOPERIDOL
     Indication: Thrombosis
     Dosage: 0.01 MG/KG
  7. HALOPERIDOL [Concomitant]
     Active Substance: HALOPERIDOL
     Indication: Thrombosis prophylaxis
     Dosage: 0.01 MG/KG
  8. HALOPERIDOL [Concomitant]
     Active Substance: HALOPERIDOL
     Indication: Symptomatic treatment
     Dosage: 0.01 MG/KG
  9. HEPARIN [Concomitant]
     Active Substance: HEPARIN SODIUM
     Dosage: UNK
  10. HYDROXYCHLOROQUINE [Concomitant]
     Active Substance: HYDROXYCHLOROQUINE
     Indication: Immunomodulatory therapy
     Dosage: 5 MG/KG
  11. UNSPECIFIED INGREDIENT [Concomitant]
     Active Substance: UNSPECIFIED INGREDIENT
     Indication: Thrombosis prophylaxis
     Dosage: 1 MG/KG
     Route: 058
  12. METHYLPREDNISOLONE [Concomitant]
     Active Substance: METHYLPREDNISOLONE
     Indication: Sydenham^s chorea
     Dosage: 1 MG/KG
  13. RIVAROXABAN [Concomitant]
     Active Substance: RIVAROXABAN
     Indication: Thrombosis prophylaxis
     Dosage: 0.4 MG/KG

REACTIONS (3)
  - Hypogammaglobulinaemia [Unknown]
  - Product use in unapproved indication [Unknown]
  - Off label use [Unknown]
